FAERS Safety Report 13181738 (Version 4)
Quarter: 2017Q1

REPORT INFORMATION
  Report Type: Spontaneous
  Country: US (occurrence: US)
  Receive Date: 20170202
  Receipt Date: 20170322
  Transmission Date: 20170428
  Serious: No
  Sender: FDA-Public Use
  Company Number: US-ACTELION-A-NJ2016-142133

PATIENT
  Age: 37 Year
  Sex: Female
  Weight: 97.51 kg

DRUGS (1)
  1. VELETRI [Suspect]
     Active Substance: EPOPROSTENOL
     Indication: PULMONARY ARTERIAL HYPERTENSION
     Dosage: 40 NG/KG, PER MIN
     Route: 042
     Dates: start: 20160531

REACTIONS (9)
  - Catheter site infection [Unknown]
  - Pain in jaw [Recovered/Resolved]
  - Skin irritation [Unknown]
  - Pain in extremity [Unknown]
  - Diarrhoea [Unknown]
  - Catheter site discharge [Unknown]
  - Flushing [Unknown]
  - Catheter site pruritus [Unknown]
  - Device breakage [Unknown]

NARRATIVE: CASE EVENT DATE: 20161024
